FAERS Safety Report 11859752 (Version 2)
Quarter: 2015Q4

REPORT INFORMATION
  Report Type: Spontaneous
  Country: NL (occurrence: NL)
  Receive Date: 20151222
  Receipt Date: 20151229
  Transmission Date: 20160305
  Serious: Yes (Death, Other)
  Sender: FDA-Public Use
  Company Number: NL-BAYER-2015-487524

PATIENT
  Age: 44 Year
  Sex: Female

DRUGS (7)
  1. CIPROXIN [Suspect]
     Active Substance: CIPROFLOXACIN
     Indication: LUNG INFECTION
     Dosage: UNK
  2. FLUCLOXACILLIN [Suspect]
     Active Substance: FLUCLOXACILLIN
     Indication: LUNG INFECTION
     Dosage: UNK
  3. GALENIC /PIPERACILLIN/TAZOBACTAM [Suspect]
     Active Substance: PIPERACILLIN SODIUM\TAZOBACTAM SODIUM
     Indication: LUNG INFECTION
     Dosage: UNK
  4. AZTREONAM. [Suspect]
     Active Substance: AZTREONAM
     Indication: CYSTIC FIBROSIS
     Dosage: 75 MG, TID
     Route: 055
     Dates: start: 20151027, end: 20151101
  5. MEROPENEM. [Suspect]
     Active Substance: MEROPENEM
     Indication: LUNG INFECTION
     Dosage: UNK
  6. AZTREONAM. [Suspect]
     Active Substance: AZTREONAM
     Indication: PSEUDOMONAS INFECTION
  7. AZTREONAM. [Suspect]
     Active Substance: AZTREONAM
     Indication: ANTIBIOTIC PROPHYLAXIS

REACTIONS (10)
  - Cardiac asthma [Fatal]
  - Hypoxia [Fatal]
  - Cystic fibrosis [Fatal]
  - Acute prerenal failure [Fatal]
  - Pulmonary oedema [Fatal]
  - Respiratory tract infection [Fatal]
  - Cor pulmonale [Fatal]
  - Pancytopenia [Fatal]
  - Lung infection [Fatal]
  - Cardiac failure acute [Fatal]
